FAERS Safety Report 16677621 (Version 1)
Quarter: 2019Q3

REPORT INFORMATION
  Report Type: Spontaneous
  Country: US (occurrence: US)
  Receive Date: 20190807
  Receipt Date: 20190807
  Transmission Date: 20191004
  Serious: No
  Sender: FDA-Public Use
  Company Number: US-TEVA-2019-US-1086569

PATIENT
  Sex: Female

DRUGS (1)
  1. LORAZEPAM. [Suspect]
     Active Substance: LORAZEPAM
     Dosage: DOSE STRENGTH: 0.5 MG
     Route: 065

REACTIONS (3)
  - Product contamination [Unknown]
  - Wrong technique in product usage process [Unknown]
  - Malaise [Unknown]
